FAERS Safety Report 8721254 (Version 3)
Quarter: 2012Q4

REPORT INFORMATION
  Report Type: 
  Country: US (occurrence: US)
  Receive Date: 20120813
  Receipt Date: 20121115
  Transmission Date: 20130627
  Serious: Yes (Other)
  Sender: FDA-Public Use
  Company Number: US-ROCHE-1065000

PATIENT
  Age: 16 None
  Sex: Male
  Weight: 104.42 kg

DRUGS (2)
  1. ACCUTANE [Suspect]
     Indication: ACNE
     Route: 065
     Dates: start: 20000302, end: 20000901
  2. TYLENOL [Concomitant]

REACTIONS (14)
  - Inflammatory bowel disease [Unknown]
  - Colitis ulcerative [Unknown]
  - Gastric ulcer [Unknown]
  - Gastrointestinal disorder [Unknown]
  - Depression [Unknown]
  - Suicidal ideation [Unknown]
  - Rectal fissure [Unknown]
  - Irritable bowel syndrome [Unknown]
  - Cheilitis [Unknown]
  - Dry skin [Unknown]
  - Visual impairment [Unknown]
  - Blood triglycerides increased [Unknown]
  - Epistaxis [Unknown]
  - Arthralgia [Unknown]
